FAERS Safety Report 12254737 (Version 1)
Quarter: 2016Q2

REPORT INFORMATION
  Report Type: Spontaneous
  Country: AT (occurrence: AT)
  Receive Date: 20160411
  Receipt Date: 20160411
  Transmission Date: 20160815
  Serious: Yes (Other)
  Sender: FDA-Public Use
  Company Number: AT-TEVA-649840ISR

PATIENT
  Sex: Male

DRUGS (4)
  1. SIMVASTATIN 20MG [Suspect]
     Active Substance: SIMVASTATIN
     Dosage: SINCE OCT/NOV 2015
     Dates: start: 2015
  2. AMLODIPIN [Concomitant]
     Active Substance: AMLODIPINE BESYLATE
  3. LISINOCOMP [Concomitant]
  4. DOXAZOSIN 4MG [Concomitant]

REACTIONS (8)
  - Visual acuity reduced [Unknown]
  - Dizziness [Unknown]
  - Personality change [Unknown]
  - Confusional state [Unknown]
  - Vision blurred [Unknown]
  - Vertigo [Unknown]
  - Diplopia [Unknown]
  - Vestibular disorder [Unknown]
